FAERS Safety Report 8249955-8 (Version None)
Quarter: 2012Q2

REPORT INFORMATION
  Report Type: 
  Country: None (occurrence: None)
  Receive Date: 20120402
  Receipt Date: 20120322
  Transmission Date: 20120825
  Serious: Yes (Hospitalization)
  Sender: FDA-Public Use
  Company Number: GB-SANOFI-AVENTIS-2012SA020318

PATIENT
  Age: 50 Year
  Sex: Male
  Weight: 149 kg

DRUGS (3)
  1. SIMVASTATIN [Concomitant]
     Dosage: AT NIGHT.
  2. FUROSEMIDE [Suspect]
     Route: 065
     Dates: start: 20120229, end: 20120304
  3. RAMIPRIL [Concomitant]

REACTIONS (1)
  - SWELLING FACE [None]
